FAERS Safety Report 23982374 (Version 1)
Quarter: 2024Q2

REPORT INFORMATION
  Report Type: Spontaneous
  Country: PL (occurrence: PL)
  Receive Date: 20240617
  Receipt Date: 20240617
  Transmission Date: 20240716
  Serious: Yes (Other)
  Sender: FDA-Public Use
  Company Number: None

PATIENT
  Age: 73 Year
  Sex: Male
  Weight: 103 kg

DRUGS (2)
  1. VECTIBIX [Suspect]
     Active Substance: PANITUMUMAB
     Indication: Rectal cancer
     Dosage: STRENGTH: 0.1/5ML; 494 DOSE UNIT UNKNOWN; ONGOING THERAPY
     Route: 040
     Dates: start: 20191021
  2. VECTIBIX [Suspect]
     Active Substance: PANITUMUMAB
     Dosage: STRENGTH: 0.4/20ML; 494 DOSE UNIT UNKNOWN; ONGOING THERAPY
     Route: 040
     Dates: start: 20191021

REACTIONS (2)
  - Dermatitis [Recovering/Resolving]
  - Conjunctivitis [Recovering/Resolving]

NARRATIVE: CASE EVENT DATE: 20200420
